FAERS Safety Report 6911243-7 (Version None)
Quarter: 2010Q3

REPORT INFORMATION
  Report Type: 
  Country: None (occurrence: None)
  Receive Date: 20100806
  Receipt Date: 20100727
  Transmission Date: 20110219
  Serious: Yes (Other)
  Sender: FDA-Public Use
  Company Number: PHHY2010VE50067

PATIENT
  Sex: Female

DRUGS (4)
  1. FEMARA [Suspect]
     Indication: BREAST CANCER
     Dosage: UNK
     Route: 048
     Dates: start: 20030801
  2. FOLIC ACID [Concomitant]
     Dosage: UNK
  3. ASCORBIC ACID [Concomitant]
     Dosage: UNK
  4. VITAMIN E [Concomitant]
     Dosage: UNK

REACTIONS (3)
  - CONJUNCTIVITIS [None]
  - SURGERY [None]
  - VISUAL ACUITY REDUCED [None]
